FAERS Safety Report 4982221-2 (Version None)
Quarter: 2006Q2

REPORT INFORMATION
  Report Type: 
  Country: None (occurrence: None)
  Receive Date: 20060419
  Receipt Date: 20060330
  Transmission Date: 20061013
  Serious: Yes (Death, Hospitalization)
  Sender: FDA-Public Use
  Company Number: US200603006895

PATIENT
  Age: 60 Year
  Sex: Female
  Weight: 55.8 kg

DRUGS (10)
  1. DOCETAXEL(DOCETAXEL) [Suspect]
     Indication: NON-SMALL CELL LUNG CANCER
     Dosage: 30 MG/M2, OTHER, INTRAVENOUS
     Route: 042
     Dates: start: 20060220
  2. GEMZAR [Suspect]
  3. FENTANYL [Concomitant]
  4. MORPHINE SULFATE [Concomitant]
  5. ATIVAN [Concomitant]
  6. PREDNISONE TAB [Concomitant]
  7. COMBIVENT/GFR/(IPRATROPIUM BROMIDE, SALBUTAMOL SULFATE) [Concomitant]
  8. ADVAIR DISKUS 100/50 [Concomitant]
  9. LORTAB [Concomitant]
  10. DEXAMETHASONE [Concomitant]

REACTIONS (7)
  - ANAEMIA [None]
  - CHRONIC OBSTRUCTIVE PULMONARY DISEASE [None]
  - CONDITION AGGRAVATED [None]
  - FEBRILE NEUTROPENIA [None]
  - PNEUMONITIS [None]
  - PULMONARY HILUM MASS [None]
  - URINARY TRACT INFECTION [None]
